FAERS Safety Report 10707222 (Version 1)
Quarter: 2015Q1

REPORT INFORMATION
  Report Type: Spontaneous
  Country: US (occurrence: None)
  Receive Date: 20150112
  Receipt Date: 20150112
  Transmission Date: 20150721
  Serious: Yes (Hospitalization)
  Sender: FDA-Public Use
  Company Number: None

PATIENT
  Age: 82 Year
  Sex: Male
  Weight: 79.5 kg

DRUGS (1)
  1. OXYCODONE [Suspect]
     Active Substance: OXYCODONE
     Indication: BACK PAIN
     Route: 048

REACTIONS (5)
  - Depressed level of consciousness [None]
  - Miosis [None]
  - Fall [None]
  - Somnolence [None]
  - Opiates positive [None]

NARRATIVE: CASE EVENT DATE: 20141012
